FAERS Safety Report 8825339 (Version 2)
Quarter: 2013Q2

REPORT INFORMATION
  Report Type: Spontaneous
  Country: US (occurrence: US)
  Receive Date: 20121004
  Receipt Date: 20130612
  Transmission Date: 20140414
  Serious: No
  Sender: FDA-Public Use
  Company Number: US-009507513-1210USA000041

PATIENT
  Age: 66 Year
  Sex: Female

DRUGS (7)
  1. AZASITE [Suspect]
     Indication: EYE IRRITATION
     Dosage: 2 GTT, QD
     Route: 047
     Dates: start: 20120923
  2. AZASITE [Suspect]
     Indication: EYE INFECTION
  3. LOTEMAX [Concomitant]
     Dosage: 2 GTT, UNK
     Dates: start: 20120920
  4. DOXYCYCLINE [Concomitant]
     Dosage: 50 MG, BID
     Dates: start: 20121010
  5. OMEGA-3 [Concomitant]
     Dosage: UNK
     Dates: start: 20120911
  6. VITAMINS (UNSPECIFIED) [Concomitant]
     Dosage: UNK
     Dates: start: 20120911
  7. RESTASIS [Concomitant]
     Dosage: BID/PRN
     Dates: start: 20121017

REACTIONS (8)
  - Conjunctivitis allergic [Recovered/Resolved]
  - Incorrect drug administration duration [Unknown]
  - Drug dose omission [Unknown]
  - Product quality issue [Unknown]
  - Inappropriate schedule of drug administration [Unknown]
  - Dry eye [Recovered/Resolved]
  - Ocular hyperaemia [Recovered/Resolved]
  - Lacrimation increased [Recovered/Resolved]
